FAERS Safety Report 4678984-6 (Version None)
Quarter: 2005Q2

REPORT INFORMATION
  Report Type: 
  Country: None (occurrence: None)
  Receive Date: 20050531
  Receipt Date: 20050525
  Transmission Date: 20051028
  Serious: Yes (Hospitalization)
  Sender: FDA-Public Use
  Company Number: A0560108A

PATIENT
  Sex: Male

DRUGS (3)
  1. COREG [Suspect]
     Indication: CARDIAC FAILURE CONGESTIVE
     Dosage: SEE IMAGE
     Route: 048
     Dates: start: 19990101, end: 20041220
  2. FRUSEMIDE [Concomitant]
  3. AMLODIPINE [Concomitant]

REACTIONS (3)
  - BRONCHIOLOALVEOLAR CARCINOMA [None]
  - PNEUMONIA [None]
  - TREATMENT NONCOMPLIANCE [None]
